FAERS Safety Report 6644819-5 (Version None)
Quarter: 2010Q1

REPORT INFORMATION
  Report Type: 
  Country: None (occurrence: None)
  Receive Date: 20100322
  Receipt Date: 20100308
  Transmission Date: 20100710
  Serious: Yes (Disabling, Other)
  Sender: FDA-Public Use
  Company Number: FR-CELGENEUS-056-21880-10010268

PATIENT
  Sex: Male
  Weight: 72 kg

DRUGS (7)
  1. REVLIMID [Suspect]
     Route: 048
     Dates: start: 20091009, end: 20091022
  2. REVLIMID [Suspect]
     Route: 048
     Dates: start: 20091205
  3. REVLIMID [Suspect]
     Route: 048
  4. DEXAMETHASONE [Concomitant]
     Indication: MULTIPLE MYELOMA
     Route: 048
     Dates: start: 20091009, end: 20091016
  5. AREDIA [Concomitant]
     Indication: DRUG USE FOR UNKNOWN INDICATION
     Route: 051
     Dates: start: 20091001
  6. ZELITREX [Concomitant]
     Route: 065
  7. DURAGESIC-100 [Concomitant]
     Indication: PAIN
     Route: 065

REACTIONS (5)
  - DEAFNESS NEUROSENSORY [None]
  - HEARING IMPAIRED [None]
  - NAUSEA [None]
  - PANCYTOPENIA [None]
  - VOMITING [None]
